FAERS Safety Report 8524960-2 (Version None)
Quarter: 2012Q3

REPORT INFORMATION
  Report Type: 
  Country: None (occurrence: None)
  Receive Date: 20120720
  Receipt Date: 20120706
  Transmission Date: 20120928
  Serious: Yes (Death, Hospitalization)
  Sender: FDA-Public Use
  Company Number: JP-SANOFI-AVENTIS-2012SA044237

PATIENT
  Age: 44 Year
  Sex: Female
  Weight: 55.5 kg

DRUGS (13)
  1. LEUCON [Concomitant]
     Indication: LEUKOPENIA
     Dosage: 2 TABLETS
     Route: 048
     Dates: start: 20110805, end: 20111205
  2. CYCLOPHOSPHAMIDE [Suspect]
     Indication: BREAST CANCER
     Dosage: 7 CYCLES, TOTAL 4 COURSES
     Route: 065
     Dates: start: 20110722, end: 20110922
  3. LORAZEPAM [Concomitant]
     Indication: ANXIETY
     Dosage: THREE TIMES DAILY, SEVEN TIMES EVERY 21 DAYS
     Route: 048
     Dates: start: 20110723, end: 20111130
  4. EPIRUBICIN [Suspect]
     Indication: BREAST CANCER
     Dosage: 7 CYCLES, TOTAL 4 COURSES
     Route: 065
     Dates: start: 20110722, end: 20110922
  5. TAXOTERE [Suspect]
     Indication: BREAST CANCER
     Dosage: 4 CYCLES, TOTAL 3 COURSES, DOSE TAKEN ONCE DAILY
     Route: 041
     Dates: start: 20111014, end: 20111125
  6. DECADRON PHOSPHATE [Concomitant]
     Dosage: 8 TABLETS BID, TWICE EVERY 21 DAYS
     Route: 048
     Dates: start: 20110723, end: 20111127
  7. LORAZEPAM [Concomitant]
     Dosage: THREE TIMES DAILY, SEVEN TIMES EVERY 21 DAYS
     Route: 048
     Dates: start: 20110723, end: 20111130
  8. KYTRIL [Concomitant]
     Dosage: 1 PACKAGE (2 MG) DAILY, FOUR TIMES EVERY 21 DAYS
     Route: 048
     Dates: start: 20110723, end: 20111129
  9. PROCHLORPERAZINE [Concomitant]
     Dosage: 1 TABLET TID, SEVEN TIMES EVERY 21 DAYS
     Route: 048
     Dates: start: 20110723, end: 20111201
  10. KYTRIL [Concomitant]
     Dosage: ONCE EVERY 3 WEEKS
     Route: 041
     Dates: start: 20111014, end: 20111125
  11. CEPHARANTHIN [Concomitant]
     Dosage: 2 TABLETS
     Route: 048
     Dates: start: 20110805, end: 20111205
  12. DECADRON PHOSPHATE [Concomitant]
     Route: 041
     Dates: start: 20111014, end: 20111125
  13. MARZULENE S [Concomitant]
     Indication: GASTRITIS
     Dosage: 1 PACKAGE THREE TIMES A DAY, TWICE EVERY 21 DAYS
     Dates: start: 20110723, end: 20111127

REACTIONS (15)
  - INTESTINAL ISCHAEMIA [None]
  - VOMITING [None]
  - HEART RATE INCREASED [None]
  - PYREXIA [None]
  - GASTROINTESTINAL NECROSIS [None]
  - COLITIS ISCHAEMIC [None]
  - DIARRHOEA [None]
  - CLOSTRIDIAL INFECTION [None]
  - BONE MARROW FAILURE [None]
  - WHITE BLOOD CELL COUNT DECREASED [None]
  - NEUTROPENIA [None]
  - GAS GANGRENE [None]
  - ABDOMINAL PAIN [None]
  - BLOOD CREATINE PHOSPHOKINASE INCREASED [None]
  - MULTI-ORGAN FAILURE [None]
